FAERS Safety Report 16358647 (Version 2)
Quarter: 2019Q2

REPORT INFORMATION
  Report Type: Report from Study
  Country: US (occurrence: US)
  Receive Date: 20190527
  Receipt Date: 20190621
  Transmission Date: 20190711
  Serious: Yes (Hospitalization, Other)
  Sender: FDA-Public Use
  Company Number: PHHY2019US104261

PATIENT
  Age: 58 Year
  Sex: Female
  Weight: 109.7 kg

DRUGS (2)
  1. GILENYA [Suspect]
     Active Substance: FINGOLIMOD HYDROCHLORIDE
     Indication: RELAPSING-REMITTING MULTIPLE SCLEROSIS
     Dosage: 0.5 MG, QD
     Route: 048
     Dates: start: 20160118
  2. ASPIRIN. [Concomitant]
     Active Substance: ASPIRIN
     Indication: PRODUCT USED FOR UNKNOWN INDICATION
     Route: 065

REACTIONS (10)
  - Haemangioma of skin [Unknown]
  - Lentigo [Unknown]
  - Dermatitis [Unknown]
  - Abdominal pain lower [Unknown]
  - Basal cell carcinoma [Recovered/Resolved]
  - Melanocytic naevus [Unknown]
  - Actinic keratosis [Unknown]
  - Neoplasm skin [Unknown]
  - Renal cell carcinoma [Recovered/Resolved]
  - Seborrhoeic keratosis [Unknown]

NARRATIVE: CASE EVENT DATE: 20160413
